FAERS Safety Report 14187312 (Version 1)
Quarter: 2017Q4

REPORT INFORMATION
  Report Type: Spontaneous
  Country: TR (occurrence: TR)
  Receive Date: 20171114
  Receipt Date: 20171114
  Transmission Date: 20180321
  Serious: Yes (Hospitalization)
  Sender: FDA-Public Use
  Company Number: TR-009507513-1711TUR002837

PATIENT
  Age: 74 Year
  Sex: Female

DRUGS (6)
  1. XARELTO [Concomitant]
     Active Substance: RIVAROXABAN
  2. NOXAFIL [Suspect]
     Active Substance: POSACONAZOLE
     Indication: PRODUCT USED FOR UNKNOWN INDICATION
     Dosage: UNK
     Route: 048
     Dates: start: 20171026, end: 20171027
  3. DILOPIN [Concomitant]
  4. NOXAFIL [Suspect]
     Active Substance: POSACONAZOLE
     Dosage: UNK
     Route: 048
     Dates: start: 20171030
  5. BELOC-ZOK [Concomitant]
     Active Substance: METOPROLOL SUCCINATE
  6. ACCUZIDE [Concomitant]
     Active Substance: HYDROCHLOROTHIAZIDE\QUINAPRIL HYDROCHLORIDE

REACTIONS (6)
  - Pyrexia [Recovering/Resolving]
  - Feeling cold [Unknown]
  - Pyrexia [Recovering/Resolving]
  - Chills [Unknown]
  - Leukocytosis [Recovering/Resolving]
  - Leukocytosis [Recovering/Resolving]

NARRATIVE: CASE EVENT DATE: 20171026
